FAERS Safety Report 14167663 (Version 2)
Quarter: 2017Q4

REPORT INFORMATION
  Report Type: Spontaneous
  Country: US (occurrence: JP)
  Receive Date: 20171107
  Receipt Date: 20171110
  Transmission Date: 20180321
  Serious: Yes (Other)
  Sender: FDA-Public Use
  Company Number: US-SUNOVION-2017SUN004809

PATIENT
  Age: 75 Year
  Sex: Male

DRUGS (2)
  1. SPIRIVA [Concomitant]
     Active Substance: TIOTROPIUM BROMIDE MONOHYDRATE
     Dosage: UNK
  2. INDACATEROL [Suspect]
     Active Substance: INDACATEROL
     Indication: PRODUCT USED FOR UNKNOWN INDICATION
     Dosage: UNK
     Route: 055

REACTIONS (5)
  - Body temperature increased [Recovered/Resolved]
  - Tachycardia [Recovered/Resolved]
  - Blood pressure increased [Recovered/Resolved]
  - Flushing [Recovered/Resolved]
  - Dyspnoea [Recovered/Resolved]
